APPROVED DRUG PRODUCT: LEVONORGESTREL AND ETHINYL ESTRADIOL
Active Ingredient: ETHINYL ESTRADIOL; LEVONORGESTREL
Strength: 0.03MG,0.04MG,0.03MG;0.05MG,0.075MG,0.125MG
Dosage Form/Route: TABLET;ORAL-28
Application: A202970 | Product #001
Applicant: XIROMED LLC
Approved: Mar 23, 2018 | RLD: No | RS: No | Type: DISCN